FAERS Safety Report 11059803 (Version 2)
Quarter: 2015Q2

REPORT INFORMATION
  Report Type: Spontaneous
  Country: ES (occurrence: ES)
  Receive Date: 20150423
  Receipt Date: 20150508
  Transmission Date: 20150821
  Serious: Yes (Other)
  Sender: FDA-Public Use
  Company Number: ES-TEVA-556340ISR

PATIENT
  Age: 35 Year
  Sex: Male

DRUGS (2)
  1. PEGYLATED INTERFERON NOS [Suspect]
     Active Substance: PEGINTERFERON ALFA-2A OR PEGINTERFERON ALFA-2B OR PEGINTERFERON BETA-1A OR PEGINTERFERON LAMBDA-1A
     Indication: CHRONIC HEPATITIS C
     Route: 065
  2. RIBAVIRIN. [Suspect]
     Active Substance: RIBAVIRIN
     Indication: CHRONIC HEPATITIS C
     Route: 065

REACTIONS (1)
  - Pyoderma gangrenosum [Recovered/Resolved]
